FAERS Safety Report 13362146 (Version 1)
Quarter: 2017Q1

REPORT INFORMATION
  Report Type: Spontaneous
  Country: US (occurrence: US)
  Receive Date: 20170323
  Receipt Date: 20170323
  Transmission Date: 20170429
  Serious: Yes (Hospitalization, Other)
  Sender: FDA-Public Use
  Company Number: US-GLAXOSMITHKLINE-US2017GSK039893

PATIENT
  Age: 28 Year
  Sex: Male
  Weight: 88.44 kg

DRUGS (7)
  1. VIVITROL [Suspect]
     Active Substance: NALTREXONE
     Indication: DRUG DEPENDENCE
     Dosage: 380 MG, CYC
     Route: 030
     Dates: start: 20170128
  2. VALIUM [Suspect]
     Active Substance: DIAZEPAM
     Indication: PRODUCT USED FOR UNKNOWN INDICATION
  3. SEROQUEL [Concomitant]
     Active Substance: QUETIAPINE FUMARATE
     Dosage: 100 MG, UNK
  4. VISTARIL [Concomitant]
     Active Substance: HYDROXYZINE PAMOATE
     Dosage: 100 MG, UNK
  5. WELLBUTRIN XL [Suspect]
     Active Substance: BUPROPION HYDROCHLORIDE
     Indication: PRODUCT USED FOR UNKNOWN INDICATION
     Dosage: 300 MG, UNK
  6. PROZAC [Concomitant]
     Active Substance: FLUOXETINE HYDROCHLORIDE
     Dosage: 20 MG, UNK
  7. TRAZODONE [Suspect]
     Active Substance: TRAZODONE HYDROCHLORIDE
     Indication: PRODUCT USED FOR UNKNOWN INDICATION
     Dosage: 100 MG, PRN

REACTIONS (20)
  - Fatigue [Unknown]
  - Adverse drug reaction [Recovering/Resolving]
  - Drug screen positive [Unknown]
  - Euphoric mood [Unknown]
  - Vomiting [Unknown]
  - Drug interaction [Unknown]
  - Blood creatinine increased [Unknown]
  - Lethargy [Unknown]
  - Somnolence [Unknown]
  - Malaise [Unknown]
  - Neuroleptic malignant syndrome [Unknown]
  - Drug dependence [Unknown]
  - Sluggishness [Unknown]
  - Restlessness [Unknown]
  - Blood phosphorus abnormal [Unknown]
  - Mental disorder [Unknown]
  - Gastroenteritis viral [Unknown]
  - Pyrexia [Unknown]
  - Restlessness [Unknown]
  - Blood potassium increased [Unknown]

NARRATIVE: CASE EVENT DATE: 201702
